FAERS Safety Report 10450676 (Version 1)
Quarter: 2014Q3

REPORT INFORMATION
  Report Type: Spontaneous
  Country: US (occurrence: None)
  Receive Date: 20140910
  Receipt Date: 20140910
  Transmission Date: 20150326
  Serious: Yes (Death, Other)
  Sender: FDA-Public Use
  Company Number: 2014JUB00120

PATIENT
  Age: 70 Year
  Sex: Male

DRUGS (2)
  1. PREDNISONE (PREDNISONE) UNKNOWN [Suspect]
     Active Substance: PREDNISONE
     Indication: PEMPHIGUS
  2. AZATHIOPRINE (AZATHIOPRINE) [Suspect]
     Active Substance: AZATHIOPRINE
     Indication: PEMPHIGUS

REACTIONS (3)
  - Respiratory failure [None]
  - Pneumonia cytomegaloviral [None]
  - Cytomegalovirus infection [None]
